FAERS Safety Report 18898694 (Version 2)
Quarter: 2021Q1

REPORT INFORMATION
  Report Type: Report from Study
  Country: JP (occurrence: JP)
  Receive Date: 20210216
  Receipt Date: 20210224
  Transmission Date: 20210420
  Serious: Yes (Other)
  Sender: FDA-Public Use
  Company Number: JP-BRISTOL-MYERS SQUIBB COMPANY-BMS-2021-014547

PATIENT
  Age: 71 Year
  Sex: Male
  Weight: 60.1 kg

DRUGS (10)
  1. 5?FLUOROURACIL [Suspect]
     Active Substance: FLUOROURACIL
     Indication: OESOPHAGEAL CARCINOMA
     Dosage: 1000 MILLIGRAM/SQ. METER, DAY1 TO DAY4
     Route: 042
     Dates: start: 20201224
  2. AZUNOL GARGLE LIQUID [Concomitant]
     Indication: PROPHYLAXIS
     Dosage: APPROPRIATE AMOUNT
     Route: 002
     Dates: start: 20210106
  3. NIVOLUMAB [Suspect]
     Active Substance: NIVOLUMAB
     Indication: OESOPHAGEAL CARCINOMA
     Dosage: 240 MILLIGRAM
     Route: 041
     Dates: start: 20201224
  4. MAGMITT [Concomitant]
     Active Substance: MAGNESIUM OXIDE
     Indication: CONSTIPATION
     Dosage: BETWEEN 990MG AND 1980MG, EVERYDAY
     Route: 048
     Dates: start: 20201227
  5. NIVOLUMAB [Suspect]
     Active Substance: NIVOLUMAB
     Dosage: 240 MILLIGRAM
     Route: 041
     Dates: start: 20210107
  6. NIVOLUMAB [Suspect]
     Active Substance: NIVOLUMAB
     Dosage: 240 MILLIGRAM
     Route: 041
     Dates: start: 20210122
  7. CISPLATIN. [Suspect]
     Active Substance: CISPLATIN
     Dosage: RE?CALCULATED DOSE
     Route: 042
     Dates: start: 20210122
  8. NIVOLUMAB [Suspect]
     Active Substance: NIVOLUMAB
     Dosage: 240 MILLIGRAM
     Route: 041
     Dates: start: 20210203
  9. CISPLATIN. [Suspect]
     Active Substance: CISPLATIN
     Indication: OESOPHAGEAL CARCINOMA
     Dosage: 75 MILLIGRAM/SQ. METER, DAY1 AND DAY29
     Route: 042
     Dates: start: 20201224
  10. 5?FLUOROURACIL [Suspect]
     Active Substance: FLUOROURACIL
     Dosage: RE?CALCULATED DOSE
     Route: 042
     Dates: start: 20210122

REACTIONS (1)
  - Oesophagitis [Recovering/Resolving]

NARRATIVE: CASE EVENT DATE: 20210108
